FAERS Safety Report 4767060-X (Version None)
Quarter: 2005Q3

REPORT INFORMATION
  Report Type: 
  Country: None (occurrence: None)
  Receive Date: 20050908
  Receipt Date: 20050908
  Transmission Date: 20060218
  Serious: Yes (Hospitalization)
  Sender: FDA-Public Use
  Company Number: None

PATIENT
  Age: 89 Year
  Sex: Female
  Weight: 71 kg

DRUGS (7)
  1. OXAPROZIN [Suspect]
     Indication: PAIN
     Dosage: 600 MG BID [CHRONIC]
  2. PREDNISONE [Suspect]
     Indication: RHEUMATOID ARTHRITIS
     Dosage: 2 MG QD [CHRONIC]
  3. FOSAMAX [Concomitant]
  4. DYAZIDE [Concomitant]
  5. AVAPRO [Concomitant]
  6. CALCIUM CARB [Concomitant]
  7. CARDIZEM [Concomitant]

REACTIONS (5)
  - CELLULITIS [None]
  - GASTRIC ULCER [None]
  - HAEMATOCRIT DECREASED [None]
  - HAEMOGLOBIN DECREASED [None]
  - MELAENA [None]
